FAERS Safety Report 6583781-0 (Version None)
Quarter: 2010Q1

REPORT INFORMATION
  Report Type: 
  Country: None (occurrence: None)
  Receive Date: 20100213
  Receipt Date: 20100213
  Transmission Date: 20100710
  Serious: Yes (Other)
  Sender: FDA-Public Use
  Company Number: None

PATIENT
  Sex: Female

DRUGS (1)
  1. GENTAMICIN [Suspect]
     Indication: PROPHYLAXIS
     Dosage: 1 APPLICATION ONCE OPHTHALMIC
     Route: 047
     Dates: start: 20100204, end: 20100204

REACTIONS (2)
  - EYE SWELLING [None]
  - OCULAR HYPERAEMIA [None]
